FAERS Safety Report 9581798 (Version 1)
Quarter: 2013Q4

REPORT INFORMATION
  Report Type: Spontaneous
  Country: US (occurrence: US)
  Receive Date: 20131002
  Receipt Date: 20131002
  Transmission Date: 20140711
  Serious: No
  Sender: FDA-Public Use
  Company Number: US-B.I. PHARMACEUTICALS,INC./RIDGEFIELD-2013-BI-29879BP

PATIENT
  Age: 75 Year
  Sex: Male

DRUGS (9)
  1. GILOTRIF [Suspect]
     Indication: NON-SMALL CELL LUNG CANCER
     Dosage: 40 MG
     Route: 048
     Dates: start: 20130920
  2. NEXIUM [Concomitant]
     Dosage: 20 MG
  3. METOPROLOL [Concomitant]
     Indication: ATRIAL FIBRILLATION
  4. DILTIAZEN [Concomitant]
     Dosage: 60 MG
  5. PRADAXA [Concomitant]
     Indication: ANTICOAGULANT THERAPY
  6. LIPITOR [Concomitant]
     Dosage: 20 MG
  7. MULTIVITAMIN [Concomitant]
  8. ACIDOPHILUS [Concomitant]
     Indication: PROBIOTIC THERAPY
  9. TYLENOL [Concomitant]

REACTIONS (3)
  - Headache [Not Recovered/Not Resolved]
  - Dizziness [Unknown]
  - Disorientation [Unknown]
